FAERS Safety Report 25981645 (Version 1)
Quarter: 2025Q4

REPORT INFORMATION
  Report Type: Spontaneous
  Country: US (occurrence: None)
  Receive Date: 20251031
  Receipt Date: 20251031
  Transmission Date: 20260118
  Serious: Yes (Other)
  Sender: BANNER
  Company Number: US-PTA-006352

PATIENT
  Age: 21 Year
  Sex: Female

DRUGS (4)
  1. IBUPROFEN [Suspect]
     Active Substance: IBUPROFEN
     Indication: Traumatic pain
  2. ACETAMINOPHEN [Suspect]
     Active Substance: ACETAMINOPHEN
     Indication: Traumatic pain
  3. ACETAMINOPHEN [Suspect]
     Active Substance: ACETAMINOPHEN
     Indication: Inguinal mass
  4. IBUPROFEN [Suspect]
     Active Substance: IBUPROFEN
     Indication: Inguinal mass

REACTIONS (4)
  - Inguinal mass [Unknown]
  - Drug ineffective [Unknown]
  - Erythema [Unknown]
  - Condition aggravated [Unknown]
